FAERS Safety Report 22020083 (Version 1)
Quarter: 2023Q1

REPORT INFORMATION
  Report Type: Spontaneous
  Country: FR (occurrence: FR)
  Receive Date: 20230222
  Receipt Date: 20230222
  Transmission Date: 20230418
  Serious: Yes (Hospitalization, Other)
  Sender: FDA-Public Use
  Company Number: None

PATIENT
  Age: 70 Year
  Sex: Female

DRUGS (4)
  1. LOVENOX [Suspect]
     Active Substance: ENOXAPARIN SODIUM
     Indication: Thrombosis prophylaxis
     Dosage: DOSAGE NOT SPECIFIED
     Route: 058
     Dates: start: 20221013, end: 20221123
  2. RIFAMPIN [Suspect]
     Active Substance: RIFAMPIN
     Indication: Post procedural infection
     Dates: start: 20221020, end: 20221123
  3. FUROSEMIDE [Suspect]
     Active Substance: FUROSEMIDE
     Indication: Acute pulmonary oedema
     Dosage: DOSAGE NOT SPECIFIED
     Dates: start: 20221112, end: 20221123
  4. BACTRIM [Suspect]
     Active Substance: SULFAMETHOXAZOLE\TRIMETHOPRIM
     Indication: Post procedural infection
     Dosage: UNK
     Dates: start: 20221030, end: 20221123

REACTIONS (1)
  - Drug reaction with eosinophilia and systemic symptoms [Recovering/Resolving]

NARRATIVE: CASE EVENT DATE: 20221121
